FAERS Safety Report 13932144 (Version 2)
Quarter: 2018Q1

REPORT INFORMATION
  Report Type: Spontaneous
  Country: US (occurrence: US)
  Receive Date: 20170904
  Receipt Date: 20180124
  Transmission Date: 20180508
  Serious: No
  Sender: FDA-Public Use
  Company Number: US-PFIZER INC-2017376732

PATIENT
  Age: 45 Year
  Sex: Female
  Weight: 72.56 kg

DRUGS (4)
  1. XELJANZ XR [Suspect]
     Active Substance: TOFACITINIB CITRATE
     Indication: RHEUMATOID ARTHRITIS
     Dosage: 11 MG, ONCE DAILY
     Route: 048
     Dates: start: 201702
  2. XELJANZ XR [Suspect]
     Active Substance: TOFACITINIB CITRATE
     Dosage: 11 MG, DAILY (AT NIGHT)
  3. RELAFEN [Concomitant]
     Active Substance: NABUMETONE
     Dosage: 500 MG, AS NEEDED [FOR NIGHT]
  4. FLEXERIL [Concomitant]
     Active Substance: CYCLOBENZAPRINE HYDROCHLORIDE
     Dosage: 10 MG, AS NEEDED [FOR NIGHT]

REACTIONS (5)
  - Inflammatory marker increased [Unknown]
  - Nasal congestion [Not Recovered/Not Resolved]
  - Bronchitis [Recovering/Resolving]
  - Laboratory test abnormal [Unknown]
  - Malaise [Unknown]

NARRATIVE: CASE EVENT DATE: 2017
